FAERS Safety Report 18451749 (Version 2)
Quarter: 2022Q2

REPORT INFORMATION
  Report Type: Report from Study
  Country: DE (occurrence: DE)
  Receive Date: 20201102
  Receipt Date: 20220616
  Transmission Date: 20220720
  Serious: Yes (Hospitalization)
  Sender: FDA-Public Use
  Company Number: DE-TAKEDA-DE201917189

PATIENT
  Sex: Male

DRUGS (9)
  1. IDURSULFASE [Suspect]
     Active Substance: IDURSULFASE
     Indication: Mucopolysaccharidosis II
     Dosage: 0.5 MILLIGRAM/KILOGRAM, 1X/WEEK (EVERY WEEK)
     Route: 042
     Dates: start: 20070417
  2. METHYLPHENIDATE [Concomitant]
     Active Substance: METHYLPHENIDATE
     Indication: Behaviour disorder
     Dosage: UNK
     Route: 065
     Dates: start: 20081013, end: 20090423
  3. AMOXICILLIN [Concomitant]
     Active Substance: AMOXICILLIN
     Indication: Otitis media acute
     Dosage: UNK
     Route: 048
     Dates: start: 200904, end: 200904
  4. CILOXAN [Concomitant]
     Active Substance: CIPROFLOXACIN HYDROCHLORIDE
     Indication: Otitis media acute
     Dosage: UNK
     Route: 061
     Dates: start: 200904, end: 200904
  5. AZELAIC ACID [Concomitant]
     Active Substance: AZELAIC ACID
     Indication: Acne
     Dosage: UNK
     Route: 061
     Dates: start: 20140520
  6. MINOCYCLINE [Concomitant]
     Active Substance: MINOCYCLINE HYDROCHLORIDE
     Indication: Acne
     Dosage: UNK
     Route: 048
     Dates: start: 20140520, end: 201406
  7. EPIDUO [Concomitant]
     Active Substance: ADAPALENE\BENZOYL PEROXIDE
     Indication: Acne
     Dosage: UNK
     Route: 061
     Dates: start: 20140520
  8. ENALAPRIL [Concomitant]
     Active Substance: ENALAPRIL
     Indication: Hypertension
     Dosage: UNK
     Route: 048
     Dates: start: 201408
  9. METOPROLOL [Concomitant]
     Active Substance: METOPROLOL
     Indication: Hypertension
     Dosage: UNK
     Route: 048
     Dates: start: 201409

REACTIONS (1)
  - Middle ear effusion [Recovered/Resolved]

NARRATIVE: CASE EVENT DATE: 20130401
